FAERS Safety Report 23958065 (Version 1)
Quarter: 2024Q2

REPORT INFORMATION
  Report Type: Report from Study
  Country: US (occurrence: None)
  Receive Date: 20240610
  Receipt Date: 20240610
  Transmission Date: 20240716
  Serious: Yes (Life-Threatening)
  Sender: FDA-Public Use
  Company Number: 2024A131711

PATIENT
  Sex: Female
  Weight: 48 kg

DRUGS (1)
  1. CALQUENCE [Suspect]
     Active Substance: ACALABRUTINIB
     Indication: Leukaemia
     Route: 048
     Dates: start: 20230928

REACTIONS (6)
  - Hypertensive crisis [Recovered/Resolved]
  - Micturition urgency [Unknown]
  - Weight increased [Unknown]
  - Full blood count abnormal [Unknown]
  - Fatigue [Unknown]
  - Dyspnoea [Unknown]
